FAERS Safety Report 8258391-X (Version None)
Quarter: 2012Q1

REPORT INFORMATION
  Report Type: 
  Country: None (occurrence: None)
  Receive Date: 20120322
  Receipt Date: 20111227
  Transmission Date: 20120608
  Serious: Yes (Death)
  Sender: FDA-Public Use
  Company Number: UTC-013961

PATIENT
  Age: 48 Year
  Sex: Female
  Weight: 54.54 kg

DRUGS (2)
  1. TYVASO [Suspect]
     Indication: PULMONARY ARTERIAL HYPERTENSION
     Dosage: 216 MCG (54 MCG, 4 IN 1 D),INHALATION
     Route: 055
     Dates: start: 20110316
  2. COUMADIN [Concomitant]

REACTIONS (2)
  - TREATMENT NONCOMPLIANCE [None]
  - DEATH [None]
